FAERS Safety Report 20261027 (Version 1)
Quarter: 2021Q4

REPORT INFORMATION
  Report Type: Spontaneous
  Country: US (occurrence: US)
  Receive Date: 20211230
  Receipt Date: 20211230
  Transmission Date: 20220303
  Serious: No
  Sender: FDA-Public Use
  Company Number: US-COOPERSURGICAL, INC.-US-2021CPS001175

PATIENT
  Sex: Female
  Weight: 89.796 kg

DRUGS (3)
  1. PARAGARD T 380A [Suspect]
     Active Substance: COPPER
     Indication: Contraception
     Dosage: UNK
     Route: 015
     Dates: start: 20210114, end: 202104
  2. LYSTEDA [Concomitant]
     Active Substance: TRANEXAMIC ACID
     Indication: Product used for unknown indication
     Route: 065
  3. XOPENEX [Concomitant]
     Active Substance: LEVALBUTEROL HYDROCHLORIDE
     Indication: Product used for unknown indication
     Route: 065

REACTIONS (4)
  - Sensation of foreign body [Recovered/Resolved]
  - Device expulsion [Recovered/Resolved]
  - Muscle spasms [Unknown]
  - Intentional medical device removal by patient [Recovered/Resolved]

NARRATIVE: CASE EVENT DATE: 20210101
